FAERS Safety Report 21563532 (Version 8)
Quarter: 2024Q1

REPORT INFORMATION
  Report Type: Report from Study
  Country: US (occurrence: US)
  Receive Date: 20221108
  Receipt Date: 20240102
  Transmission Date: 20240410
  Serious: Yes (Hospitalization, Other)
  Sender: FDA-Public Use
  Company Number: US-DECIPHERA PHARMACEUTICALS LLC-2022US000905

PATIENT
  Age: 69 Year
  Sex: Male
  Weight: 73.107 kg

DRUGS (9)
  1. QINLOCK [Suspect]
     Active Substance: RIPRETINIB
     Indication: Malignant connective tissue neoplasm
     Dosage: 150 MILLIGRAM, QD
     Route: 048
     Dates: start: 20221017, end: 20221207
  2. QINLOCK [Suspect]
     Active Substance: RIPRETINIB
     Dosage: 100 MILLIGRAM, QD
     Route: 048
     Dates: start: 20221216
  3. QINLOCK [Suspect]
     Active Substance: RIPRETINIB
     Dosage: 100 MILLIGRAM, QD
     Route: 048
  4. QINLOCK [Suspect]
     Active Substance: RIPRETINIB
     Dosage: 100 MILLIGRAM, QD
     Route: 048
  5. QINLOCK [Suspect]
     Active Substance: RIPRETINIB
     Dosage: 3 TABLETS DAILY ALTERNATING IT WITH 2 TABLETS ONCE A DAY
     Route: 048
  6. QINLOCK [Suspect]
     Active Substance: RIPRETINIB
     Dosage: 150 MILLIGRAM, QD
     Route: 048
     Dates: end: 20231222
  7. AMLODIPINE [Concomitant]
     Active Substance: AMLODIPINE BESYLATE
     Indication: Product used for unknown indication
     Dosage: UNK
     Dates: start: 2022
  8. LOSARTAN [Concomitant]
     Active Substance: LOSARTAN
     Indication: Product used for unknown indication
     Dosage: UNK
     Dates: end: 2022
  9. MAGNESIUM [Concomitant]
     Active Substance: MAGNESIUM
     Indication: Product used for unknown indication
     Dosage: UNK

REACTIONS (28)
  - Acidosis [Unknown]
  - Dehydration [Unknown]
  - Blood creatinine increased [Recovered/Resolved]
  - Fatigue [Unknown]
  - Faeces discoloured [Unknown]
  - Pain [Unknown]
  - Disease progression [Unknown]
  - Blood magnesium decreased [Unknown]
  - Full blood count decreased [Unknown]
  - Taste disorder [Unknown]
  - Dry mouth [Unknown]
  - Adverse event [Unknown]
  - Insomnia [Unknown]
  - Abdominal distension [Unknown]
  - Decreased appetite [Unknown]
  - Blood calcium decreased [Unknown]
  - Hyperkeratosis [Not Recovered/Not Resolved]
  - Abdominal pain [Recovered/Resolved]
  - Palmar-plantar erythrodysaesthesia syndrome [Unknown]
  - Myalgia [Unknown]
  - Arthralgia [Recovering/Resolving]
  - Diarrhoea [Not Recovered/Not Resolved]
  - Muscle spasms [Unknown]
  - Constipation [Recovered/Resolved]
  - Weight decreased [Unknown]
  - Drug ineffective [Unknown]
  - Product use in unapproved indication [Unknown]
  - Inappropriate schedule of product administration [Unknown]

NARRATIVE: CASE EVENT DATE: 20220101
